FAERS Safety Report 5714250-5 (Version None)
Quarter: 2008Q2

REPORT INFORMATION
  Report Type: 
  Country: None (occurrence: None)
  Receive Date: 20080418
  Receipt Date: 20080407
  Transmission Date: 20081010
  Serious: Yes (Death, Hospitalization, Other)
  Sender: FDA-Public Use
  Company Number: 2008-01141

PATIENT
  Age: 44 Year
  Sex: Female

DRUGS (3)
  1. VELCADE [Suspect]
     Indication: DRUG USE FOR UNKNOWN INDICATION
     Dosage: 2.04 MG,
     Dates: start: 20070418, end: 20080121
  2. THALIDOMIDE [Concomitant]
  3. DEXAMETHASONE [Concomitant]

REACTIONS (8)
  - HERPES ZOSTER [None]
  - HYPOAESTHESIA [None]
  - HYPOCALCAEMIA [None]
  - NEUROPATHY PERIPHERAL [None]
  - NEUTROPENIC SEPSIS [None]
  - NOSOCOMIAL INFECTION [None]
  - PNEUMONIA [None]
  - RESPIRATORY FAILURE [None]
